FAERS Safety Report 4438989-7 (Version None)
Quarter: 2004Q3

REPORT INFORMATION
  Report Type: 
  Country: None (occurrence: None)
  Receive Date: 20040830
  Receipt Date: 20040819
  Transmission Date: 20050211
  Serious: Yes (Hospitalization)
  Sender: FDA-Public Use
  Company Number: MEDI-0002165

PATIENT
  Age: 4 Month
  Sex: Female

DRUGS (6)
  1. SYNAGIS [Suspect]
     Indication: ANTIVIRAL PROPHYLAXIS
     Dosage: SEE IMAGE
     Route: 030
     Dates: start: 20031227, end: 20031227
  2. SYNAGIS [Suspect]
     Indication: ANTIVIRAL PROPHYLAXIS
     Dosage: SEE IMAGE
     Route: 030
     Dates: start: 20040422, end: 20040422
  3. SYNAGIS [Suspect]
     Indication: ANTIVIRAL PROPHYLAXIS
     Dosage: SEE IMAGE
     Route: 030
     Dates: start: 20040225
  4. SYNAGIS [Suspect]
     Indication: ANTIVIRAL PROPHYLAXIS
     Dosage: SEE IMAGE
     Route: 030
     Dates: start: 20040325
  5. FERRIC PYROPHOSPHATE 9FERRIC PYROPHOSPHATE) [Concomitant]
  6. ALFACALCIDOL (ALFALCALCIDOL) [Concomitant]

REACTIONS (4)
  - HERNIA CONGENITAL [None]
  - ILEUS [None]
  - INFLUENZA [None]
  - UPPER RESPIRATORY TRACT INFLAMMATION [None]
